FAERS Safety Report 4865513-7 (Version None)
Quarter: 2005Q4

REPORT INFORMATION
  Report Type: 
  Country: None (occurrence: None)
  Receive Date: 20051220
  Receipt Date: 20051129
  Transmission Date: 20060501
  Serious: Yes (Hospitalization)
  Sender: FDA-Public Use
  Company Number: NL200511003044

PATIENT
  Age: 63 Year
  Sex: Female

DRUGS (2)
  1. EVISTA [Suspect]
     Indication: OSTEOPOROSIS
     Dosage: 60 MG DAILY (1/D)
     Dates: start: 20030317, end: 20040618
  2. CALCIUM(CALCIUM) [Concomitant]

REACTIONS (3)
  - MUSCLE SPASMS [None]
  - PALPITATIONS [None]
  - THROMBOCYTOPENIA [None]
